FAERS Safety Report 10028133 (Version 3)
Quarter: 2014Q2

REPORT INFORMATION
  Report Type: Spontaneous
  Country: US (occurrence: None)
  Receive Date: 20140319
  Receipt Date: 20140509
  Transmission Date: 20141212
  Serious: Yes (Hospitalization)
  Sender: FDA-Public Use
  Company Number: 2014P1001970

PATIENT
  Age: 25 Year
  Sex: Male
  Weight: 55.79 kg

DRUGS (3)
  1. ACTIMMUNE [Suspect]
     Indication: COCCIDIOIDOMYCOSIS
     Route: 058
     Dates: start: 201308, end: 20140326
  2. VFEND [Concomitant]
  3. BACTRIM [Concomitant]

REACTIONS (4)
  - Off label use [None]
  - Coccidioidomycosis [None]
  - Unevaluable event [None]
  - Hospitalisation [None]
